FAERS Safety Report 5233676-X (Version None)
Quarter: 2007Q1

REPORT INFORMATION
  Report Type: 
  Country: None (occurrence: None)
  Receive Date: 20061208
  Receipt Date: 20060321
  Transmission Date: 20070707
  Serious: Yes (Other)
  Sender: FDA-Public Use
  Company Number: 2006UW04913

PATIENT
  Age: 55 Year
  Sex: Female
  Weight: 79.378 kg

DRUGS (6)
  1. CRESTOR [Suspect]
     Indication: BLOOD CHOLESTEROL INCREASED
     Dosage: 10 MG DAILY PO
     Route: 048
     Dates: start: 20060301
  2. KLONOPIN [Concomitant]
  3. PROZAC [Concomitant]
  4. ADVAIR DISKUS 100/50 [Concomitant]
  5. ALBUTEROL [Concomitant]
  6. TRAZODONE HCL [Concomitant]

REACTIONS (1)
  - FURUNCLE [None]
